FAERS Safety Report 15849702 (Version 2)
Quarter: 2019Q1

REPORT INFORMATION
  Report Type: Spontaneous
  Country: FR (occurrence: FR)
  Receive Date: 20190121
  Receipt Date: 20190130
  Transmission Date: 20190417
  Serious: Yes (Hospitalization, Other)
  Sender: FDA-Public Use
  Company Number: FR-MYLANLABS-2019M1004238

PATIENT
  Age: 70 Year
  Sex: Male
  Weight: 91 kg

DRUGS (2)
  1. VALACYCLOVIR [Interacting]
     Active Substance: VALACYCLOVIR HYDROCHLORIDE
     Indication: PROPHYLAXIS
     Dosage: 1000 MILLIGRAM, QD
     Route: 048
     Dates: start: 20170627, end: 20170628
  2. METHOTREXATE MYLAN [Suspect]
     Active Substance: METHOTREXATE SODIUM
     Indication: B-CELL LYMPHOMA
     Dosage: 7 GIGABECQUEREL
     Route: 042
     Dates: start: 20170627, end: 20170627

REACTIONS (3)
  - Renal failure [Recovered/Resolved]
  - Drug interaction [Unknown]
  - Incorrect disposal of product [Recovered/Resolved]

NARRATIVE: CASE EVENT DATE: 20170629
